FAERS Safety Report 4561787-0 (Version None)
Quarter: 2005Q1

REPORT INFORMATION
  Report Type: 
  Country: None (occurrence: None)
  Receive Date: 20050125
  Receipt Date: 20050111
  Transmission Date: 20050727
  Serious: Yes (Hospitalization, Other)
  Sender: FDA-Public Use
  Company Number: 2005010971

PATIENT
  Age: 59 Year
  Sex: Female
  Weight: 149.687 kg

DRUGS (18)
  1. CELEBREX [Suspect]
     Indication: OSTEOARTHRITIS
     Dosage: 200 MG (200 MG, 1 IN 1 D), ORAL
     Route: 048
     Dates: start: 20010101
  2. BIMATOPROST (BIMATOPROST) [Concomitant]
  3. GLIPIZIDE [Concomitant]
  4. INSULIN HUMAN INJECTION, ISOPHANE (INSULIN HUMAN INJECTION, ISOPHANE) [Concomitant]
  5. ESOMEPRAZOLE (ESOMEPRAZOLE) [Concomitant]
  6. ALPRAZOLAM [Concomitant]
  7. SALBUTAMOL (SALBUTAMOL) [Concomitant]
  8. COMBIVENT [Concomitant]
  9. IPRATROPIUM BROMIDE (IPRATROPRIUM BROMIDE) [Concomitant]
  10. CYANOCOBALAMIN (CYANOCOBALAMIN) [Concomitant]
  11. CLONAZEPAM [Concomitant]
  12. ERGOCALCIFEROL (ERGOCALCIFEROL) [Concomitant]
  13. ACETAMINOPHEN [Concomitant]
  14. CALCIUM WITH VITAMIN D (CALCIUM PHOSPHATE, CALCIUM SODIUM LACTATE, ERT [Concomitant]
  15. IRON (IRON) [Concomitant]
  16. NITROGLYCERIN [Concomitant]
  17. ASPIRIN [Concomitant]
  18. VICODIN (HYDROCHLLORIDE BITARTRATE, PARACETAMOL) [Concomitant]

REACTIONS (8)
  - APNOEA [None]
  - ASTHENIA [None]
  - ATRIAL FIBRILLATION [None]
  - BLOOD POTASSIUM DECREASED [None]
  - CARDIAC FAILURE CONGESTIVE [None]
  - FLUID RETENTION [None]
  - MYALGIA [None]
  - SWELLING [None]
